FAERS Safety Report 23815069 (Version 1)
Quarter: 2024Q2

REPORT INFORMATION
  Report Type: Spontaneous
  Country: US (occurrence: None)
  Receive Date: 20240502
  Receipt Date: 20240502
  Transmission Date: 20240716
  Serious: Yes (Hospitalization)
  Sender: FDA-Public Use
  Company Number: None

PATIENT
  Age: 78 Year
  Sex: Male
  Weight: 63 kg

DRUGS (14)
  1. JARDIANCE [Suspect]
     Active Substance: EMPAGLIFLOZIN
     Indication: Type 2 diabetes mellitus
     Dosage: 1 TABLET DAILY ORAL
     Route: 048
     Dates: start: 20231030, end: 20240403
  2. Cartia [Concomitant]
  3. LANTUS [Concomitant]
     Active Substance: INSULIN GLARGINE
  4. TRULICITY [Concomitant]
     Active Substance: DULAGLUTIDE
  5. LOSARTAN [Concomitant]
     Active Substance: LOSARTAN
  6. XARELTO [Concomitant]
     Active Substance: RIVAROXABAN
  7. METFORMIN [Concomitant]
     Active Substance: METFORMIN HYDROCHLORIDE
  8. GLIMEPIRIDE [Concomitant]
     Active Substance: GLIMEPIRIDE
  9. TAMSULOSIN [Concomitant]
     Active Substance: TAMSULOSIN
  10. PRAVASTATIN [Concomitant]
     Active Substance: PRAVASTATIN
  11. IRON [Concomitant]
     Active Substance: IRON
  12. VITAMINS [Concomitant]
     Active Substance: VITAMINS
  13. SENNA [Concomitant]
     Active Substance: SENNA LEAF\SENNOSIDES\SENNOSIDES A AND B
  14. MAGNESIUM [Concomitant]
     Active Substance: MAGNESIUM

REACTIONS (1)
  - Diabetic ketoacidosis [None]

NARRATIVE: CASE EVENT DATE: 20240403
